FAERS Safety Report 15935937 (Version 1)
Quarter: 2019Q1

REPORT INFORMATION
  Report Type: Spontaneous
  Country: US (occurrence: US)
  Receive Date: 20190208
  Receipt Date: 20190208
  Transmission Date: 20190417
  Serious: Yes (Death, Hospitalization)
  Sender: FDA-Public Use
  Company Number: US-TEVA-2019-US-1008887

PATIENT
  Age: 57 Year
  Sex: Female

DRUGS (1)
  1. FENTANYL GENERIC ORAL LOZENGE [Suspect]
     Active Substance: FENTANYL
     Route: 048

REACTIONS (2)
  - Hospitalisation [Unknown]
  - Death [Fatal]

NARRATIVE: CASE EVENT DATE: 201705
